FAERS Safety Report 10416958 (Version 1)
Quarter: 2014Q3

REPORT INFORMATION
  Report Type: Report from Study
  Country: US (occurrence: US)
  Receive Date: 20140828
  Receipt Date: 20140828
  Transmission Date: 20150326
  Serious: Yes (Death)
  Sender: FDA-Public Use
  Company Number: US-BAXTER-2014BAX052584

PATIENT

DRUGS (5)
  1. UNFRACTIONATED HEPARIN [Suspect]
     Active Substance: HEPARIN SODIUM
     Indication: PRODUCT USED FOR UNKNOWN INDICATION
     Route: 065
  2. 0.9% SODIUM CHLORIDE INJECTION [Suspect]
     Active Substance: SODIUM CHLORIDE
     Dosage: 1.0 ML/KG FOR REMAINING 12 HR ESSENTIALLY UNTIL THE FOLLOWING DAY
     Route: 065
  3. PLASMA-LYTE 56 [Suspect]
     Active Substance: MAGNESIUM ACETATE TETRAHYDRATE\POTASSIUM ACETATE\SODIUM CHLORIDE
     Indication: PRODUCT USED FOR UNKNOWN INDICATION
     Route: 065
  4. OSMITROL [Suspect]
     Active Substance: MANNITOL
     Indication: PRODUCT USED FOR UNKNOWN INDICATION
     Route: 065
  5. 0.9% SODIUM CHLORIDE INJECTION [Suspect]
     Active Substance: SODIUM CHLORIDE
     Indication: PRODUCT USED FOR UNKNOWN INDICATION
     Dosage: 0.154 M AT 5.0 ML/KG GIVEN OVER 15 MINUTES PRIOR TO INITIATION OF CARDIOPULMONARY BYPASS
     Route: 065

REACTIONS (1)
  - Death [Fatal]
